FAERS Safety Report 21896879 (Version 1)
Quarter: 2023Q1

REPORT INFORMATION
  Report Type: Spontaneous
  Country: US (occurrence: US)
  Receive Date: 20230123
  Receipt Date: 20230123
  Transmission Date: 20230418
  Serious: Yes (Other)
  Sender: FDA-Public Use
  Company Number: US-SA-SAC20230120001891

PATIENT
  Age: 30 Year
  Sex: Female
  Weight: 60.317 kg

DRUGS (20)
  1. DUPIXENT [Suspect]
     Active Substance: DUPILUMAB
     Indication: Asthma
     Dosage: 300 MG, QOW
     Route: 058
  2. CLINDAMYCIN HYDROCHLORIDE [Concomitant]
     Active Substance: CLINDAMYCIN HYDROCHLORIDE
  3. OYSCO 500+D [Concomitant]
  4. SYNTHROID [Concomitant]
     Active Substance: LEVOTHYROXINE SODIUM
  5. NADOLOL [Concomitant]
     Active Substance: NADOLOL
  6. PEPCID [Concomitant]
     Active Substance: FAMOTIDINE
  7. CROMOLYN SODIUM [Concomitant]
     Active Substance: CROMOLYN SODIUM
  8. CLARITIN [Concomitant]
     Active Substance: LORATADINE
  9. VITAMINS [Concomitant]
     Active Substance: VITAMINS
  10. UBRELVY [Concomitant]
     Active Substance: UBROGEPANT
  11. PREDNISONE [Concomitant]
     Active Substance: PREDNISONE
  12. PROVERA [MEDROXYPROGESTERONE] [Concomitant]
  13. XOPENEX [Concomitant]
     Active Substance: LEVALBUTEROL HYDROCHLORIDE
  14. SYMBICORT [Concomitant]
     Active Substance: BUDESONIDE\FORMOTEROL FUMARATE DIHYDRATE
  15. SPIRIVA [Concomitant]
     Active Substance: TIOTROPIUM BROMIDE MONOHYDRATE
  16. CLONAZEPAM [Concomitant]
     Active Substance: CLONAZEPAM
  17. DILANTIN [Concomitant]
     Active Substance: PHENYTOIN
  18. LOVASTATIN [Concomitant]
     Active Substance: LOVASTATIN
  19. ZYRTEC [Concomitant]
     Active Substance: CETIRIZINE HYDROCHLORIDE
  20. SODIUM CHLORIDE [Concomitant]
     Active Substance: SODIUM CHLORIDE

REACTIONS (3)
  - Osteomyelitis [Unknown]
  - Tooth infection [Unknown]
  - Sinus disorder [Unknown]
